FAERS Safety Report 14486367 (Version 3)
Quarter: 2018Q2

REPORT INFORMATION
  Report Type: Spontaneous
  Country: US (occurrence: US)
  Receive Date: 20180205
  Receipt Date: 20180612
  Transmission Date: 20180711
  Serious: Yes (Death, Hospitalization)
  Sender: FDA-Public Use
  Company Number: US-JNJFOC-20180202936

PATIENT
  Age: 73 Year
  Sex: Female

DRUGS (4)
  1. ALDACTONE [Concomitant]
     Active Substance: SPIRONOLACTONE
  2. IMBRUVICA [Suspect]
     Active Substance: IBRUTINIB
     Indication: ASTHENIA
     Route: 065
     Dates: start: 20171205
  3. PREDNISONE. [Concomitant]
     Active Substance: PREDNISONE
  4. SENNA [Concomitant]
     Active Substance: SENNA LEAF\SENNOSIDES\SENNOSIDES A AND B

REACTIONS (6)
  - Eye injury [Unknown]
  - Fall [Unknown]
  - Off label use [Unknown]
  - Disease progression [Fatal]
  - Rib fracture [Unknown]
  - Product use in unapproved indication [Unknown]

NARRATIVE: CASE EVENT DATE: 20171205
